FAERS Safety Report 5336951-3 (Version None)
Quarter: 2007Q2

REPORT INFORMATION
  Report Type: 
  Country: None (occurrence: None)
  Receive Date: 20070529
  Receipt Date: 20070515
  Transmission Date: 20071010
  Serious: Yes (Other)
  Sender: FDA-Public Use
  Company Number: US-ROCHE-485883

PATIENT
  Age: 25 Year
  Sex: Female
  Weight: 56.2 kg

DRUGS (5)
  1. ACCUTANE [Suspect]
     Route: 048
     Dates: start: 19930413, end: 19930814
  2. ACCUTANE [Suspect]
     Route: 048
     Dates: start: 19940520, end: 19940923
  3. E.E.S. [Concomitant]
  4. KEFLEX [Concomitant]
  5. TRIPHASIL-28 [Concomitant]

REACTIONS (22)
  - ANAEMIA [None]
  - ANAL FISTULA [None]
  - ANXIETY [None]
  - ARTHRITIS [None]
  - ARTHROPATHY [None]
  - BACK PAIN [None]
  - BLOOD CHOLESTEROL INCREASED [None]
  - CARDIAC MURMUR [None]
  - COLITIS [None]
  - COLON INJURY [None]
  - CROHN'S DISEASE [None]
  - DEPRESSION [None]
  - GASTROINTESTINAL INJURY [None]
  - HYPERTENSION [None]
  - INFLAMMATORY BOWEL DISEASE [None]
  - INSOMNIA [None]
  - IRRITABLE BOWEL SYNDROME [None]
  - NIGHT BLINDNESS [None]
  - PANIC ATTACK [None]
  - PERIANAL ABSCESS [None]
  - SYSTEMIC LUPUS ERYTHEMATOSUS [None]
  - VAGINAL FISTULA [None]
